FAERS Safety Report 5575570-0 (Version None)
Quarter: 2007Q4

REPORT INFORMATION
  Report Type: 
  Country: None (occurrence: None)
  Receive Date: 20071130
  Receipt Date: 20070918
  Transmission Date: 20080405
  Serious: No
  Sender: FDA-Public Use
  Company Number: US200709003816

PATIENT
  Sex: Female

DRUGS (3)
  1. BYETTA [Suspect]
     Dosage: 10 UG, 2/D
  2. LANTUS [Concomitant]
  3. AVANDIA [Concomitant]

REACTIONS (1)
  - PALPITATIONS [None]
